FAERS Safety Report 7585120-5 (Version None)
Quarter: 2011Q3

REPORT INFORMATION
  Report Type: 
  Country: None (occurrence: None)
  Receive Date: 20110701
  Receipt Date: 20110622
  Transmission Date: 20111222
  Serious: Yes (Hospitalization, Other)
  Sender: FDA-Public Use
  Company Number: US-BIOGENIDEC-2011BI016731

PATIENT
  Age: 48 Year
  Sex: Female

DRUGS (2)
  1. AVONEX [Concomitant]
     Indication: MULTIPLE SCLEROSIS
     Route: 030
     Dates: start: 19970601
  2. TYSABRI [Suspect]
     Indication: MULTIPLE SCLEROSIS
     Route: 042
     Dates: start: 20070220

REACTIONS (8)
  - HEPATITIS [None]
  - LABORATORY TEST ABNORMAL [None]
  - ENTERITIS INFECTIOUS [None]
  - DIVERTICULITIS [None]
  - PANCREATITIS [None]
  - GASTRIC INFECTION [None]
  - GASTRITIS [None]
  - HAEMATOCHEZIA [None]
